FAERS Safety Report 7103985-8 (Version None)
Quarter: 2010Q4

REPORT INFORMATION
  Report Type: 
  Country: None (occurrence: None)
  Receive Date: 20101115
  Receipt Date: 20100507
  Transmission Date: 20110411
  Serious: No
  Sender: FDA-Public Use
  Company Number: US-ALLERGAN-1006062US

PATIENT
  Sex: Female

DRUGS (1)
  1. BOTOXA? [Suspect]
     Indication: HYPERHIDROSIS
     Dosage: UNK
     Route: 023
     Dates: start: 20100201, end: 20100201

REACTIONS (1)
  - THERAPEUTIC RESPONSE DECREASED [None]
